FAERS Safety Report 16947037 (Version 3)
Quarter: 2020Q2

REPORT INFORMATION
  Report Type: Spontaneous
  Country: US (occurrence: US)
  Receive Date: 20191022
  Receipt Date: 20200424
  Transmission Date: 20200713
  Serious: No
  Sender: FDA-Public Use
  Company Number: US-PFIZER INC-2019452872

PATIENT
  Age: 69 Year
  Sex: Male
  Weight: 95.24 kg

DRUGS (3)
  1. ENTYVIO [Concomitant]
     Active Substance: VEDOLIZUMAB
     Dosage: UNK, CYCLIC (EVERY 4 WEEKS)
     Dates: start: 2018
  2. CHOLESTYRAMINE. [Concomitant]
     Active Substance: CHOLESTYRAMINE
     Indication: FLATULENCE
     Dosage: UNK
  3. XELJANZ [Suspect]
     Active Substance: TOFACITINIB CITRATE
     Indication: COLITIS ULCERATIVE
     Dosage: 5 MG, 2X/DAY
     Route: 048
     Dates: start: 2019

REACTIONS (1)
  - Anaemia [Unknown]
